FAERS Safety Report 9992745 (Version 1)
Quarter: 2014Q1

REPORT INFORMATION
  Report Type: Spontaneous
  Country: ES (occurrence: ES)
  Receive Date: 20140310
  Receipt Date: 20140310
  Transmission Date: 20141002
  Serious: Yes (Hospitalization, Other)
  Sender: FDA-Public Use
  Company Number: ES-BAYER-2014-031713

PATIENT
  Age: 54 Year
  Sex: Male

DRUGS (17)
  1. CIPROFLOXACIN [Suspect]
     Indication: WOUND INFECTION
     Dosage: UNK
     Dates: start: 200807
  2. CIPROFLOXACIN [Suspect]
     Indication: WOUND INFECTION
     Dosage: UNK
     Dates: start: 200906
  3. CLINDAMYCIN [Suspect]
     Indication: WOUND INFECTION
     Dosage: UNK
     Dates: start: 200807
  4. CLINDAMYCIN [Suspect]
     Indication: WOUND INFECTION
     Dosage: UNK
     Dates: start: 200906
  5. PIPERACILLIN W/TAZOBACTAM [Suspect]
     Indication: WOUND INFECTION
     Dosage: UNK
     Dates: start: 200807
  6. DEXKETOPROFEN [Concomitant]
     Indication: WOUND INFECTION
     Dosage: UNK
     Dates: start: 200807
  7. DEXKETOPROFEN [Concomitant]
     Indication: WOUND INFECTION
     Dosage: UNK
     Dates: start: 200807
  8. MEROPENEM [Suspect]
     Dosage: UNK
     Dates: start: 200807
  9. MEROPENEM [Suspect]
     Dosage: UNK
     Dates: start: 200906
  10. LINEZOLID [Suspect]
     Dosage: UNK
     Dates: start: 2008
  11. PARACETAMOL [Concomitant]
     Dosage: UNK
     Dates: start: 2008
  12. RIFAMPICIN [Concomitant]
     Dosage: UNK
     Dates: start: 2008
  13. METRONIDAZOLE [Concomitant]
     Dosage: UNK
     Dates: start: 2008
  14. METHYLPREDNISOLONE [Concomitant]
     Dosage: UNK
     Dates: start: 200906
  15. DEXCHLORPHENIRAMINE [Concomitant]
     Dosage: UNK
     Dates: start: 200906
  16. AZTREONAM [Suspect]
     Dosage: UNK
     Dates: start: 200906
  17. TEICOPLANIN [Suspect]
     Dosage: UNK
     Dates: start: 200906

REACTIONS (8)
  - Rash generalised [Recovering/Resolving]
  - Dermatitis exfoliative [Recovering/Resolving]
  - Gastrointestinal haemorrhage [None]
  - Hepatic failure [Recovering/Resolving]
  - Renal failure [Recovering/Resolving]
  - Sensitisation [None]
  - Rash generalised [Recovering/Resolving]
  - Rash pruritic [Recovering/Resolving]
